FAERS Safety Report 10567750 (Version 1)
Quarter: 2014Q4

REPORT INFORMATION
  Report Type: Spontaneous
  Country: US (occurrence: US)
  Receive Date: 20141106
  Receipt Date: 20141106
  Transmission Date: 20150529
  Serious: Yes (Death, Hospitalization)
  Sender: FDA-Public Use
  Company Number: US-SUN PHARMACEUTICAL INDUSTRIES LTD-2014SUN02464

PATIENT

DRUGS (1)
  1. ALLOPURINOL TABLETS, USP 100 MG [Suspect]
     Active Substance: ALLOPURINOL
     Indication: GOUT
     Dosage: 100 MG, DAILY
     Route: 065

REACTIONS (6)
  - Dyspnoea [Unknown]
  - Brain herniation [Fatal]
  - Acute kidney injury [Unknown]
  - Drug reaction with eosinophilia and systemic symptoms [Unknown]
  - Cerebral haemorrhage [Fatal]
  - Dysphagia [Unknown]
